FAERS Safety Report 9217378 (Version 2)
Quarter: 2013Q2

REPORT INFORMATION
  Report Type: Spontaneous
  Country: JP (occurrence: JP)
  Receive Date: 20130408
  Receipt Date: 20130412
  Transmission Date: 20140414
  Serious: Yes (Hospitalization, Other)
  Sender: FDA-Public Use
  Company Number: JP-SANOFI-AVENTIS-2013SA035301

PATIENT
  Age: 75 Year
  Sex: Male
  Weight: 75 kg

DRUGS (6)
  1. PLAVIX [Suspect]
     Indication: CEREBRAL INFARCTION
     Route: 048
     Dates: start: 20130312, end: 20130321
  2. RADICUT [Suspect]
     Indication: CEREBRAL INFARCTION
     Route: 042
     Dates: start: 20130305, end: 20130318
  3. NOVASTAN [Concomitant]
     Indication: CEREBRAL INFARCTION
     Dates: start: 20130305, end: 20130306
  4. NOVASTAN [Concomitant]
     Indication: CEREBRAL INFARCTION
     Dates: start: 20130307, end: 20130311
  5. JANUVIA [Concomitant]
     Indication: DIABETES MELLITUS
     Route: 048
     Dates: start: 20130317
  6. MEROPEN [Concomitant]
     Indication: PYREXIA
     Route: 042
     Dates: start: 20130312, end: 20130314

REACTIONS (3)
  - Disseminated intravascular coagulation [Recovered/Resolved]
  - Intestinal polyp haemorrhage [Recovered/Resolved]
  - Petechiae [Recovered/Resolved]
